FAERS Safety Report 22128996 (Version 2)
Quarter: 2023Q2

REPORT INFORMATION
  Report Type: Report from Study
  Country: GB (occurrence: GB)
  Receive Date: 20230323
  Receipt Date: 20230529
  Transmission Date: 20230722
  Serious: Yes (Hospitalization)
  Sender: FDA-Public Use
  Company Number: GB-002147023-NVSC2023GB059289

PATIENT
  Sex: Female

DRUGS (1)
  1. COSENTYX [Suspect]
     Active Substance: SECUKINUMAB
     Indication: Ankylosing spondylitis
     Dosage: 150 MG, QW  (ON WEEKS 0, 1, 2, 3 AND 4 FOLLOWED BY ONCE MONTHLY)
     Route: 058
     Dates: start: 20221226

REACTIONS (2)
  - Cholelithiasis [Unknown]
  - Drug ineffective [Unknown]
